FAERS Safety Report 11010479 (Version 8)
Quarter: 2015Q3

REPORT INFORMATION
  Report Type: Report from Study
  Country: KR (occurrence: KR)
  Receive Date: 20150410
  Receipt Date: 20150915
  Transmission Date: 20151125
  Serious: Yes (Hospitalization, Other)
  Sender: FDA-Public Use
  Company Number: KR-PFIZER INC-2015101105

PATIENT
  Age: 63 Year
  Sex: Male
  Weight: 71 kg

DRUGS (9)
  1. TOFACITINIB CITRATE [Suspect]
     Active Substance: TOFACITINIB CITRATE
     Indication: PSORIASIS
     Dosage: 10 MG, 2X/DAY
     Route: 048
     Dates: start: 20140305, end: 20150303
  2. SILYMARIN [Concomitant]
     Active Substance: MILK THISTLE
     Indication: ALCOHOLIC LIVER DISEASE
     Dosage: UNK
     Dates: start: 20140912
  3. ORNITHINE ASPARTATE [Concomitant]
     Active Substance: ORNITHINE ASPARTATE
     Indication: ALCOHOLIC LIVER DISEASE
     Dosage: UNK
     Dates: start: 20130322
  4. IMPACTAMIN POWER [Concomitant]
     Indication: ALCOHOLIC LIVER DISEASE
     Dosage: UNK
     Dates: start: 20140912
  5. UDCA [Concomitant]
     Indication: ALCOHOLIC LIVER DISEASE
     Dosage: UNK
     Dates: start: 20130322
  6. TEVETEN [Concomitant]
     Active Substance: EPROSARTAN MESYLATE
     Indication: HYPERTENSION
     Dosage: UNK
     Dates: start: 20040303
  7. SITAGLIPTIN [Concomitant]
     Active Substance: SITAGLIPTIN
     Indication: DIABETES MELLITUS
     Dosage: UNK
     Dates: start: 20040304
  8. PITAVASTATIN CALCIUM [Concomitant]
     Active Substance: PITAVASTATIN CALCIUM
     Indication: ALCOHOLIC LIVER DISEASE
     Dosage: UNK
     Dates: start: 20140808
  9. DIAPRIDE FORTE [Concomitant]
     Indication: DIABETES MELLITUS
     Dosage: UNK
     Dates: start: 20040305

REACTIONS (1)
  - Small cell lung cancer metastatic [Not Recovered/Not Resolved]

NARRATIVE: CASE EVENT DATE: 201501
